FAERS Safety Report 25981236 (Version 1)
Quarter: 2025Q4

REPORT INFORMATION
  Report Type: Other
  Country: US (occurrence: US)
  Receive Date: 20251030
  Receipt Date: 20251030
  Transmission Date: 20260118
  Serious: Yes (Hospitalization, Other)
  Sender: BRECKENRIDGE PHARMACEUTICAL, INC.
  Company Number: US-Breckenridge Pharmaceutical, Inc.-2187602

PATIENT
  Age: 75 Year
  Sex: Female

DRUGS (3)
  1. APIXABAN [Suspect]
     Active Substance: APIXABAN
     Indication: Atrial fibrillation
  2. DAPTOMYCIN [Concomitant]
     Active Substance: DAPTOMYCIN
  3. VANCOMYCIN HYDROCHLORIDE [Concomitant]
     Active Substance: VANCOMYCIN HYDROCHLORIDE

REACTIONS (6)
  - Epistaxis [Unknown]
  - Intervertebral discitis [Unknown]
  - Cerebrovascular accident [Unknown]
  - Atrial thrombosis [Unknown]
  - Osteomyelitis [Unknown]
  - Staphylococcal bacteraemia [Unknown]
